FAERS Safety Report 24617570 (Version 2)
Quarter: 2024Q4

REPORT INFORMATION
  Report Type: Spontaneous
  Country: CA (occurrence: CA)
  Receive Date: 20241114
  Receipt Date: 20241115
  Transmission Date: 20250115
  Serious: Yes (Other)
  Sender: SANDOZ
  Company Number: CA-SANDOZ-SDZ2024CA095152

PATIENT

DRUGS (3)
  1. VORICONAZOLE [Interacting]
     Active Substance: VORICONAZOLE
     Indication: Antifungal prophylaxis
     Dosage: 150 MG, BID (1 EVERY .5 DAYS)
     Route: 065
  2. VORICONAZOLE [Interacting]
     Active Substance: VORICONAZOLE
     Dosage: 200 MG, BID (1 EVERY .5 DAYS)
     Route: 065
  3. VENETOCLAX [Interacting]
     Active Substance: VENETOCLAX
     Indication: Acute myeloid leukaemia
     Dosage: UNK
     Route: 065

REACTIONS (4)
  - Pneumonia fungal [Unknown]
  - Systemic mycosis [Unknown]
  - Drug interaction [Unknown]
  - Drug ineffective [Unknown]
